FAERS Safety Report 22765033 (Version 10)
Quarter: 2024Q3

REPORT INFORMATION
  Report Type: Spontaneous
  Country: JP (occurrence: JP)
  Receive Date: 20230731
  Receipt Date: 20240703
  Transmission Date: 20241016
  Serious: Yes (Hospitalization, Other)
  Sender: AMGEN
  Company Number: JP-AMGEN-JPNSP2022102945

PATIENT
  Sex: Male

DRUGS (19)
  1. BLINCYTO [Suspect]
     Active Substance: BLINATUMOMAB
     Indication: Acute lymphocytic leukaemia
     Dosage: 9 MICROGRAM, QD (DRIP INFUSION)
     Route: 041
     Dates: start: 20220613, end: 2022
  2. BLINCYTO [Suspect]
     Active Substance: BLINATUMOMAB
     Dosage: 28 MICROGRAM, QD (DRIP INFUSION)
     Route: 041
     Dates: start: 2022, end: 20220707
  3. BLINCYTO [Suspect]
     Active Substance: BLINATUMOMAB
     Dosage: 9 MICROGRAM (DRIP INFUSION)
     Route: 041
     Dates: start: 20220726, end: 2022
  4. BLINCYTO [Suspect]
     Active Substance: BLINATUMOMAB
     Dosage: 28 MICROGRAM (DRIP INFUSION)
     Route: 041
     Dates: start: 2022, end: 2022
  5. BLINCYTO [Suspect]
     Active Substance: BLINATUMOMAB
     Dosage: UNK, (DRIP INFUSION)
     Route: 041
     Dates: start: 20220913, end: 2022
  6. BLINCYTO [Suspect]
     Active Substance: BLINATUMOMAB
     Dosage: 28 MICROGRAM (DRIP INFUSION)
     Route: 040
     Dates: start: 2022, end: 20221010
  7. BLINCYTO [Suspect]
     Active Substance: BLINATUMOMAB
     Dosage: 9 MICROGRAM (DRIP INFUSION)
     Route: 040
     Dates: start: 20221102, end: 2022
  8. BLINCYTO [Suspect]
     Active Substance: BLINATUMOMAB
     Dosage: 28 MICROGRAM, QD (DRIP INFUSION)
     Route: 040
     Dates: start: 20221214, end: 20221231
  9. BLINCYTO [Suspect]
     Active Substance: BLINATUMOMAB
     Dosage: UNK, (DRIP INFUSION)
     Route: 040
     Dates: start: 20230101, end: 20230111
  10. BLINCYTO [Suspect]
     Active Substance: BLINATUMOMAB
     Dosage: UNK, (DRIP INFUSION)
     Route: 042
     Dates: start: 2023, end: 2023
  11. BLINCYTO [Suspect]
     Active Substance: BLINATUMOMAB
     Dosage: UNK, (DRIP INFUSION)
     Route: 042
     Dates: start: 20230523, end: 20230525
  12. BLINCYTO [Suspect]
     Active Substance: BLINATUMOMAB
     Dosage: 9 MICROGRAM, QD (DRIP INFUSION)
     Route: 042
     Dates: start: 20240625
  13. PRIMPERAN [Concomitant]
     Active Substance: METOCLOPRAMIDE HYDROCHLORIDE
     Dosage: UNK
  14. SPRYCEL [Concomitant]
     Active Substance: DASATINIB
     Dosage: 100 MILLIGRAM
  15. ICLUSIG [Concomitant]
     Active Substance: PONATINIB\PONATINIB HYDROCHLORIDE
     Dosage: 45 MILLIGRAM
  16. GRANISETRON [Concomitant]
     Active Substance: GRANISETRON
     Dosage: UNK
     Route: 040
  17. ACETAMINOPHEN [Concomitant]
     Active Substance: ACETAMINOPHEN
     Dosage: UNK
     Route: 040
  18. CLARITHROMYCIN [Concomitant]
     Active Substance: CLARITHROMYCIN
  19. DASATINIB [Concomitant]
     Active Substance: DASATINIB
     Dosage: 100 MILLIGRAM

REACTIONS (18)
  - Minimal residual disease [Unknown]
  - Cytokine release syndrome [Recovered/Resolved]
  - Decreased immune responsiveness [Unknown]
  - Upper respiratory tract inflammation [Recovering/Resolving]
  - Upper respiratory tract infection [Recovered/Resolved]
  - Pyrexia [Recovering/Resolving]
  - Pulmonary hypertension [Recovered/Resolved]
  - Mass [Recovering/Resolving]
  - Acne [Recovered/Resolved]
  - Nervous system disorder [Recovering/Resolving]
  - Injection site haemorrhage [Recovered/Resolved]
  - Diarrhoea [Recovered/Resolved]
  - Lymphocyte count increased [Unknown]
  - Tumour marker increased [Not Recovered/Not Resolved]
  - Vomiting [Recovering/Resolving]
  - Nausea [Recovering/Resolving]
  - Blood immunoglobulin G decreased [Unknown]
  - Infection [Recovered/Resolved]

NARRATIVE: CASE EVENT DATE: 20220101
